FAERS Safety Report 13281946 (Version 1)
Quarter: 2017Q1

REPORT INFORMATION
  Report Type: Spontaneous
  Country: US (occurrence: US)
  Receive Date: 20170228
  Receipt Date: 20170228
  Transmission Date: 20170428
  Serious: Yes (Hospitalization)
  Sender: FDA-Public Use
  Company Number: None

PATIENT
  Sex: Female

DRUGS (1)
  1. REMICADE [Suspect]
     Active Substance: INFLIXIMAB
     Indication: RHEUMATOID ARTHRITIS
     Dosage: 3MG PER KG IN 250ML OF 0.9% EVERY 8 WEEKS INTRAVENOUSLY
     Route: 042
     Dates: start: 20161018

REACTIONS (2)
  - Chronic obstructive pulmonary disease [None]
  - Atrial fibrillation [None]
